FAERS Safety Report 12126701 (Version 1)
Quarter: 2016Q1

REPORT INFORMATION
  Report Type: Spontaneous
  Country: US (occurrence: US)
  Receive Date: 20160229
  Receipt Date: 20160229
  Transmission Date: 20160526
  Serious: No
  Sender: FDA-Public Use
  Company Number: US-GLAXOSMITHKLINE-US2016025743

PATIENT
  Sex: Female

DRUGS (5)
  1. MEPRON [Suspect]
     Active Substance: ATOVAQUONE
     Indication: EYE PAIN
  2. MEPRON [Suspect]
     Active Substance: ATOVAQUONE
     Indication: OCULAR DISCOMFORT
  3. ATROPINE EYE DROPS [Concomitant]
  4. PREDNISONE EYE DROPS [Concomitant]
     Active Substance: PREDNISONE
  5. MEPRON [Suspect]
     Active Substance: ATOVAQUONE
     Indication: TOXOPLASMOSIS
     Route: 048
     Dates: start: 20160210

REACTIONS (3)
  - Drug dose omission [Not Recovered/Not Resolved]
  - Drug effect incomplete [Unknown]
  - Eye pain [Not Recovered/Not Resolved]

NARRATIVE: CASE EVENT DATE: 201602
